FAERS Safety Report 5662584-5 (Version None)
Quarter: 2008Q1

REPORT INFORMATION
  Report Type: 
  Country: None (occurrence: None)
  Receive Date: 20080310
  Receipt Date: 20080310
  Transmission Date: 20080703
  Serious: No
  Sender: FDA-Public Use
  Company Number: None

PATIENT
  Age: 47 Year
  Sex: Female

DRUGS (1)
  1. CHANTIX [Suspect]
     Indication: SMOKING CESSATION THERAPY
     Dates: start: 20061220, end: 20070320

REACTIONS (8)
  - ADVERSE DRUG REACTION [None]
  - ARTHRALGIA [None]
  - DEPRESSION [None]
  - FEELING ABNORMAL [None]
  - MOBILITY DECREASED [None]
  - MYALGIA [None]
  - THROMBOSIS [None]
  - WEIGHT INCREASED [None]
